FAERS Safety Report 8217500 (Version 2)
Quarter: 2014Q1

REPORT INFORMATION
  Report Type: Spontaneous
  Country: US (occurrence: US)
  Receive Date: 20111101
  Receipt Date: 20140114
  Transmission Date: 20141002
  Serious: Yes (Hospitalization, Other)
  Sender: FDA-Public Use
  Company Number: US-BAYER-2011-103471

PATIENT
  Age: 22 Year
  Sex: Female

DRUGS (6)
  1. YAZ [Suspect]
     Dosage: UNK
     Dates: start: 2003, end: 2008
  2. YASMIN [Suspect]
     Dosage: UNK
     Dates: start: 2003, end: 2008
  3. ACIPHEX [Concomitant]
  4. BENTYL [Concomitant]
  5. BACTRIM DS [Concomitant]
     Dosage: UNK UNK, BID
  6. PHENAZOPYRIDINE [Concomitant]
     Dosage: 100 MG, TID

REACTIONS (8)
  - Gallbladder disorder [None]
  - Cholecystitis [None]
  - Injury [None]
  - Pain [None]
  - Psychological trauma [None]
  - Emotional distress [None]
  - Fear [None]
  - Anxiety [None]
